FAERS Safety Report 8549629-X (Version None)
Quarter: 2012Q3

REPORT INFORMATION
  Report Type: 
  Country: None (occurrence: None)
  Receive Date: 20120730
  Receipt Date: 20120723
  Transmission Date: 20120928
  Serious: Yes (Death, Hospitalization, Other)
  Sender: FDA-Public Use
  Company Number: US-B.I. PHARMACEUTICALS,INC./RIDGEFIELD-2012-EU-03702GD

PATIENT
  Age: 92 Year
  Sex: Male

DRUGS (11)
  1. DABIGATRAN [Suspect]
     Indication: ATRIAL FIBRILLATION
     Dosage: 300 MG
     Route: 048
  2. DIGOXIN [Concomitant]
     Dosage: 0.125 MG
     Route: 048
  3. FINASTERIDE [Concomitant]
     Dosage: 5 MG
     Route: 048
  4. SYNTHROID [Concomitant]
     Dosage: 0.1 MG
     Route: 048
  5. FLUTICASONE PROPIONATE/SALMETEROL [Suspect]
     Dosage: 2 PUFFS TWICE DAILY
     Route: 055
  6. FOLIC ACID [Concomitant]
     Dosage: 1 MG
     Route: 048
  7. ERYTHROMYCIN [Suspect]
  8. PREDNISONE [Suspect]
     Dosage: 10 MG
     Route: 048
  9. TIOTROPIOM [Concomitant]
     Route: 055
  10. PROPAFENONE HCL [Suspect]
     Dosage: 450 MG
     Route: 048
  11. OMEPRAZOLE [Concomitant]
     Indication: GASTRIC ULCER
     Dosage: 20 MG
     Route: 048

REACTIONS (9)
  - GASTRIC ULCER HAEMORRHAGE [None]
  - HAEMODYNAMIC INSTABILITY [None]
  - HAEMOGLOBIN DECREASED [None]
  - RECTAL HAEMORRHAGE [None]
  - FAECES DISCOLOURED [None]
  - BLOOD PRESSURE DECREASED [None]
  - GASTROINTESTINAL HAEMORRHAGE [None]
  - DRUG INTERACTION [None]
  - ASTHENIA [None]
